FAERS Safety Report 22194726 (Version 2)
Quarter: 2023Q2

REPORT INFORMATION
  Report Type: Spontaneous
  Country: US (occurrence: US)
  Receive Date: 20230411
  Receipt Date: 20230427
  Transmission Date: 20230721
  Serious: No
  Sender: FDA-Public Use
  Company Number: US-SANOFI-01513574

PATIENT
  Age: 89 Year
  Sex: Male

DRUGS (1)
  1. ACT RESTORING ANTICAVITY FLUORIDE COOL MINT [Suspect]
     Active Substance: SODIUM FLUORIDE
     Dosage: 2X/DAY
     Route: 065
     Dates: start: 2023

REACTIONS (2)
  - Oral discomfort [Recovered/Resolved]
  - Oral pain [Unknown]

NARRATIVE: CASE EVENT DATE: 20230101
